FAERS Safety Report 10164341 (Version 2)
Quarter: 2014Q2

REPORT INFORMATION
  Report Type: Spontaneous
  Country: US (occurrence: US)
  Receive Date: 20140510
  Receipt Date: 20140510
  Transmission Date: 20141212
  Serious: No
  Sender: FDA-Public Use
  Company Number: US-BRISTOL-MYERS SQUIBB COMPANY-20058806

PATIENT
  Age: 44 Year
  Sex: Female
  Weight: 77.1 kg

DRUGS (4)
  1. BYDUREON [Suspect]
     Indication: TYPE 2 DIABETES MELLITUS
     Route: 058
     Dates: start: 201309
  2. GLUCOPHAGE [Concomitant]
  3. METFORMIN [Concomitant]
  4. GLIMEPIRIDE [Concomitant]

REACTIONS (1)
  - Incorrect product storage [Unknown]
